FAERS Safety Report 14976711 (Version 2)
Quarter: 2018Q3

REPORT INFORMATION
  Report Type: Spontaneous
  Country: FI (occurrence: FI)
  Receive Date: 20180605
  Receipt Date: 20180709
  Transmission Date: 20181010
  Serious: No
  Sender: FDA-Public Use
  Company Number: FI-ALLERGAN-1829278US

PATIENT
  Age: 37 Year
  Sex: Female

DRUGS (3)
  1. ESCITALOPRAM OXALATE ? BP [Suspect]
     Active Substance: ESCITALOPRAM OXALATE
     Indication: PRODUCT USED FOR UNKNOWN INDICATION
     Dosage: UNK
     Route: 065
     Dates: start: 201710
  2. VOXRA [Suspect]
     Active Substance: BUPROPION HYDROCHLORIDE
     Indication: DEPRESSION
     Dosage: 450 MG, QD
     Route: 048
     Dates: start: 20170505, end: 20180201
  3. TRIPTYL [Concomitant]
     Active Substance: AMITRIPTYLINE HYDROCHLORIDE
     Indication: SLEEP DISORDER
     Dosage: UNK
     Route: 065
     Dates: start: 20150606

REACTIONS (1)
  - No adverse event [Unknown]
